FAERS Safety Report 8148276-1 (Version None)
Quarter: 2012Q1

REPORT INFORMATION
  Report Type: 
  Country: None (occurrence: None)
  Receive Date: 20120218
  Receipt Date: 20110512
  Transmission Date: 20120608
  Serious: No
  Sender: FDA-Public Use
  Company Number: US-ALLERGAN-1106555US

PATIENT
  Age: 64 Year
  Sex: Female

DRUGS (3)
  1. EFFEXOR [Concomitant]
     Indication: DEPRESSION
  2. BOTOX COSMETIC [Suspect]
     Indication: SKIN WRINKLING
     Dosage: 32.5 UNITS, SINGLE
     Route: 030
     Dates: start: 20110414, end: 20110414
  3. UNSPECIFIED BLOOD THINNERS [Concomitant]

REACTIONS (1)
  - MADAROSIS [None]
